FAERS Safety Report 23503086 (Version 1)
Quarter: 2024Q1

REPORT INFORMATION
  Report Type: Spontaneous
  Country: US (occurrence: US)
  Receive Date: 20240208
  Receipt Date: 20240208
  Transmission Date: 20240410
  Serious: No
  Sender: FDA-Public Use
  Company Number: US-INTRA-CELLULAR THERAPIES, INC.-2023ICT01542

PATIENT
  Age: 77 Year
  Sex: Female
  Weight: 72.562 kg

DRUGS (7)
  1. CAPLYTA [Suspect]
     Active Substance: LUMATEPERONE
     Indication: Adjuvant therapy
     Dosage: 42 MG SAMPLES, 1X/DAY
     Route: 048
     Dates: start: 20231004, end: 202310
  2. CAPLYTA [Suspect]
     Active Substance: LUMATEPERONE
     Dosage: 42 MG SAMPLES, ^OFF AND ON^ EACH DAY
     Route: 048
     Dates: start: 202310
  3. SEROQUEL [Concomitant]
     Active Substance: QUETIAPINE FUMARATE
  4. DIGOXIN [Concomitant]
     Active Substance: DIGOXIN
  5. ATENOLOL [Concomitant]
     Active Substance: ATENOLOL
  6. COUMADIN [Concomitant]
     Active Substance: WARFARIN SODIUM
  7. TYLENOL [Concomitant]
     Active Substance: ACETAMINOPHEN
     Dosage: UNK, AS NEEDED

REACTIONS (2)
  - Dizziness [Not Recovered/Not Resolved]
  - Off label use [Not Recovered/Not Resolved]

NARRATIVE: CASE EVENT DATE: 20231004
